FAERS Safety Report 5264589-5 (Version None)
Quarter: 2007Q1

REPORT INFORMATION
  Report Type: 
  Country: None (occurrence: None)
  Receive Date: 20070314
  Receipt Date: 20070301
  Transmission Date: 20070707
  Serious: Yes (Other)
  Sender: FDA-Public Use
  Company Number: US-BAYER-200611459BWH

PATIENT
  Age: 77 Year
  Sex: Female
  Weight: 65 kg

DRUGS (20)
  1. NEXAVAR [Suspect]
     Indication: RENAL CELL CARCINOMA STAGE UNSPECIFIED
     Dosage: TOTAL DAILY DOSE: 800 MG  UNIT DOSE: 200 MG
     Route: 048
     Dates: start: 20050701
  2. SYNTHROID [Concomitant]
  3. FUROSEMIDE [Concomitant]
  4. GLUCOSAMINE CHONDROITIN [Concomitant]
  5. TYLENOL [Concomitant]
  6. CENTRUM A TO Z [Concomitant]
  7. ZINC [Concomitant]
  8. AMMONIUM [Concomitant]
  9. LOMOTIL [Concomitant]
  10. COLCHICINE [Concomitant]
  11. TRICOR [Concomitant]
  12. ALLOPURINOL [Concomitant]
  13. LOTREL [Concomitant]
  14. CITALOPRAM HYDROBROMIDE [Concomitant]
  15. ACYCLOVIR [Concomitant]
  16. URISTAT [Concomitant]
  17. PREVACID [Concomitant]
  18. RHINOCORT [Concomitant]
  19. OMMIL MOUTH SPRAY [Concomitant]
     Indication: DRY MOUTH
  20. IPRATROPIUM BROMIDE [Concomitant]

REACTIONS (5)
  - CHILLS [None]
  - COUGH [None]
  - NASOPHARYNGITIS [None]
  - RHINORRHOEA [None]
  - SKIN CANCER [None]
